FAERS Safety Report 22639414 (Version 1)
Quarter: 2023Q2

REPORT INFORMATION
  Report Type: Spontaneous
  Country: GR (occurrence: GR)
  Receive Date: 20230626
  Receipt Date: 20230626
  Transmission Date: 20230721
  Serious: Yes (Other)
  Sender: FDA-Public Use
  Company Number: GR-THERAKIND-2023000217

PATIENT
  Age: 78 Year
  Sex: Male

DRUGS (13)
  1. TOPIRAMATE [Suspect]
     Active Substance: TOPIRAMATE
     Indication: Psoriatic arthropathy
     Dosage: 25MG/DAY
     Route: 048
  2. SIMPONI [Suspect]
     Active Substance: GOLIMUMAB
     Indication: Psoriatic arthropathy
     Dosage: 50MG/MONTH
     Route: 065
     Dates: start: 2021
  3. SIMPONI [Suspect]
     Active Substance: GOLIMUMAB
  4. SIMPONI [Suspect]
     Active Substance: GOLIMUMAB
  5. RABEPRAZOLE [Suspect]
     Active Substance: RABEPRAZOLE
     Indication: Psoriatic arthropathy
     Dosage: 20MG/DAY
     Route: 048
  6. GLUCOPHAGE [Suspect]
     Active Substance: METFORMIN HYDROCHLORIDE
     Indication: Psoriatic arthropathy
     Dosage: 850MG/DAY
     Route: 065
  7. NEBIVOLOL HYDROCHLORIDE [Suspect]
     Active Substance: NEBIVOLOL HYDROCHLORIDE
     Indication: Psoriatic arthropathy
     Dosage: 5MG/DAY
     Route: 065
  8. SIMVASTATIN [Suspect]
     Active Substance: SIMVASTATIN
     Indication: Psoriatic arthropathy
     Dosage: 20MG/DAY
     Route: 065
  9. FOLIC ACID [Suspect]
     Active Substance: FOLIC ACID
     Indication: Psoriatic arthropathy
     Dosage: 5MG/WEEK
     Route: 065
  10. ASPIRIN [Suspect]
     Active Substance: ASPIRIN
     Indication: Psoriatic arthropathy
     Dosage: 100MG/DAY
     Route: 065
  11. AMLODIPINE BESYLATE\VALSARTAN [Suspect]
     Active Substance: AMLODIPINE BESYLATE\VALSARTAN
     Indication: Psoriatic arthropathy
     Dosage: (5/160/12.5)/DAY
     Route: 065
  12. FEBUXOSTAT [Suspect]
     Active Substance: FEBUXOSTAT
     Indication: Psoriatic arthropathy
     Dosage: 80MG/DAY
     Route: 065
  13. METHOTREXATE [Suspect]
     Active Substance: METHOTREXATE
     Indication: Psoriatic arthropathy
     Route: 065
     Dates: start: 2011

REACTIONS (2)
  - Epstein-Barr virus associated lymphoproliferative disorder [Recovered/Resolved]
  - Off label use [Unknown]
